FAERS Safety Report 24849854 (Version 2)
Quarter: 2025Q1

REPORT INFORMATION
  Report Type: Spontaneous
  Country: US (occurrence: US)
  Receive Date: 20250116
  Receipt Date: 20250122
  Transmission Date: 20250409
  Serious: Yes (Life-Threatening, Hospitalization)
  Sender: GE HEALTHCARE
  Company Number: US-GE HEALTHCARE-2025CSU000315

PATIENT
  Age: 41 Year
  Sex: Male

DRUGS (1)
  1. GADOLINIUM [Suspect]
     Active Substance: GADOLINIUM
     Indication: Magnetic resonance imaging
     Route: 065

REACTIONS (1)
  - Anaphylactic shock [Recovering/Resolving]
